FAERS Safety Report 8242339 (Version 3)
Quarter: 2018Q4

REPORT INFORMATION
  Report Type: Spontaneous
  Country: GB (occurrence: GB)
  Receive Date: 20111114
  Receipt Date: 20181128
  Transmission Date: 20190205
  Serious: Yes (Hospitalization, Disabling, Other)
  Sender: FDA-Public Use
  Company Number: GB-RANBAXY-2011R1-50173

PATIENT
  Age: 81 Year
  Sex: Female

DRUGS (6)
  1. FLUCONAZOLE. [Suspect]
     Active Substance: FLUCONAZOLE
     Indication: ANAL CANDIDIASIS
     Dosage: UNK
     Route: 048
     Dates: start: 20111014, end: 20111016
  2. FLUCONAZOLE. [Suspect]
     Active Substance: FLUCONAZOLE
     Indication: VULVOVAGINAL CANDIDIASIS
  3. SIMVASTATIN. [Concomitant]
     Active Substance: SIMVASTATIN
     Indication: BLOOD CHOLESTEROL INCREASED
     Dosage: THERAPY STARTED MORE THAN 1 YEAR AGO AND IS CONTINUING, TAKEN AT NIGHT
     Route: 065
  4. GALANTAMINE. [Concomitant]
     Active Substance: GALANTAMINE
     Indication: DEMENTIA
     Dosage: THERAPY STARTED MORE THAN 1 YEAR AGO AND IS CONTINUING
     Route: 065
  5. CITALOPRAM [Concomitant]
     Active Substance: CITALOPRAM HYDROBROMIDE
     Indication: DEPRESSION
     Dosage: THERAPY STARTED MORE THAN 1 YEAR AGO AND IS CONTINUING
     Route: 048
  6. LEVOTHYROXINE. [Concomitant]
     Active Substance: LEVOTHYROXINE
     Indication: HYPOTHYROIDISM
     Dosage: THERAPY STARTED MORE THAN 1 YEAR AGO AND IS CONTINUING
     Route: 065

REACTIONS (3)
  - Dehydration [Recovering/Resolving]
  - Acute generalised exanthematous pustulosis [Recovered/Resolved]
  - Renal failure [Recovering/Resolving]

NARRATIVE: CASE EVENT DATE: 20111015
